FAERS Safety Report 20729642 (Version 2)
Quarter: 2022Q2

REPORT INFORMATION
  Report Type: Spontaneous
  Country: JP (occurrence: JP)
  Receive Date: 20220420
  Receipt Date: 20220602
  Transmission Date: 20220721
  Serious: Yes (Hospitalization, Other)
  Sender: FDA-Public Use
  Company Number: JP-TAKEDA-2022TJP039186

PATIENT
  Age: 8 Decade
  Sex: Male

DRUGS (1)
  1. CABOMETYX [Suspect]
     Active Substance: CABOZANTINIB S-MALATE
     Indication: Renal cell carcinoma
     Dosage: 60 MG, QD
     Route: 048
     Dates: start: 20220317

REACTIONS (2)
  - Fall [Unknown]
  - Femur fracture [Not Recovered/Not Resolved]

NARRATIVE: CASE EVENT DATE: 20220411
